FAERS Safety Report 5779018-2 (Version None)
Quarter: 2008Q2

REPORT INFORMATION
  Report Type: 
  Country: None (occurrence: None)
  Receive Date: 20080619
  Receipt Date: 20080612
  Transmission Date: 20081010
  Serious: Yes (Other)
  Sender: FDA-Public Use
  Company Number: JP-BRISTOL-MYERS SQUIBB COMPANY-14232573

PATIENT

DRUGS (1)
  1. ABILIFY [Suspect]
     Route: 048

REACTIONS (2)
  - DELUSION [None]
  - HALLUCINATION [None]
